FAERS Safety Report 11258486 (Version 7)
Quarter: 2017Q4

REPORT INFORMATION
  Report Type: Spontaneous
  Country: US (occurrence: US)
  Receive Date: 20150710
  Receipt Date: 20171106
  Transmission Date: 20180320
  Serious: Yes (Hospitalization, Disabling, Other)
  Sender: FDA-Public Use
  Company Number: US-009507513-1507USA004338

PATIENT
  Sex: Female

DRUGS (6)
  1. FOSAMAX [Suspect]
     Active Substance: ALENDRONATE SODIUM
     Indication: OSTEOPOROSIS
     Dosage: UNK
     Route: 048
     Dates: end: 20020605
  2. ALENDRONATE SODIUM. [Suspect]
     Active Substance: ALENDRONATE SODIUM
     Dosage: 70 MG, UNK
     Route: 048
     Dates: start: 20091031, end: 20101011
  3. ALENDRONATE SODIUM. [Suspect]
     Active Substance: ALENDRONATE SODIUM
     Indication: OSTEOPOROSIS
     Dosage: UNK
     Route: 048
     Dates: start: 2012
  4. ALENDRONATE SODIUM. [Suspect]
     Active Substance: ALENDRONATE SODIUM
     Dosage: 70 MG, UNK
     Route: 048
     Dates: start: 20110620, end: 20120605
  5. ALENDRONATE SODIUM. [Suspect]
     Active Substance: ALENDRONATE SODIUM
     Indication: OSTEOPOROSIS
     Dosage: 70 MG, UNK
     Route: 048
     Dates: start: 20090122, end: 20090817
  6. FOSAMAX [Suspect]
     Active Substance: ALENDRONATE SODIUM
     Indication: OSTEOPOROSIS
     Dosage: 70 MG, QW
     Route: 048
     Dates: start: 20020605

REACTIONS (46)
  - Concussion [Unknown]
  - Constipation [Unknown]
  - Skin cancer [Unknown]
  - Tooth disorder [Unknown]
  - Chronic obstructive pulmonary disease [Unknown]
  - Large intestine polyp [Unknown]
  - Liver function test abnormal [Recovering/Resolving]
  - Pneumonia [Unknown]
  - Fracture delayed union [Unknown]
  - Femur fracture [Recovering/Resolving]
  - Multiple sclerosis [Not Recovered/Not Resolved]
  - Endodontic procedure [Unknown]
  - Myocardial infarction [Unknown]
  - Anal fistula [Unknown]
  - Atrial fibrillation [Unknown]
  - Anaemia [Unknown]
  - Joint swelling [Unknown]
  - Haemorrhage [Unknown]
  - Gastrooesophageal reflux disease [Unknown]
  - Arthralgia [Unknown]
  - Gastritis [Unknown]
  - Arrhythmia [Unknown]
  - Hysterectomy [Unknown]
  - Haemoptysis [Recovering/Resolving]
  - Fibula fracture [Unknown]
  - Fracture nonunion [Unknown]
  - Skin abrasion [Unknown]
  - Bone disorder [Unknown]
  - Arthritis [Unknown]
  - Heart rate irregular [Unknown]
  - Bladder repair [Unknown]
  - Bronchiectasis [Unknown]
  - Angina pectoris [Unknown]
  - Bronchitis [Unknown]
  - Tibia fracture [Unknown]
  - Femur fracture [Recovered/Resolved with Sequelae]
  - Fungal infection [Unknown]
  - Medical device pain [Not Recovered/Not Resolved]
  - Hypertension [Unknown]
  - Appendicectomy [Unknown]
  - Upper respiratory tract infection [Unknown]
  - Initial insomnia [Unknown]
  - Cholecystectomy [Unknown]
  - Pulmonary embolism [Unknown]
  - Dyspnoea [Unknown]
  - Fall [Unknown]

NARRATIVE: CASE EVENT DATE: 2002
